FAERS Safety Report 7607727-9 (Version None)
Quarter: 2011Q3

REPORT INFORMATION
  Report Type: 
  Country: None (occurrence: None)
  Receive Date: 20110713
  Receipt Date: 20110530
  Transmission Date: 20111222
  Serious: Yes (Other)
  Sender: FDA-Public Use
  Company Number: PHBS2011TW00496

PATIENT
  Age: 67 Year
  Sex: Female

DRUGS (1)
  1. ZOLEDRONOC ACID [Suspect]
     Dosage: UNK
     Route: 042
     Dates: start: 20110520

REACTIONS (4)
  - ASTHENIA [None]
  - PYREXIA [None]
  - BLOOD URINE [None]
  - FATIGUE [None]
